FAERS Safety Report 4833642-X (Version None)
Quarter: 2005Q4

REPORT INFORMATION
  Report Type: 
  Country: None (occurrence: None)
  Receive Date: 20051114
  Receipt Date: 20051108
  Transmission Date: 20060501
  Serious: Yes (Other)
  Sender: FDA-Public Use
  Company Number: 050134

PATIENT
  Sex: Female

DRUGS (1)
  1. HALFLYTELY [Suspect]
     Indication: COLONOSCOPY

REACTIONS (4)
  - CHILLS [None]
  - DYSPNOEA [None]
  - NAUSEA [None]
  - VOMITING [None]
